FAERS Safety Report 23026605 (Version 1)
Quarter: 2023Q4

REPORT INFORMATION
  Report Type: Other
  Country: FR (occurrence: FR)
  Receive Date: 20231004
  Receipt Date: 20231004
  Transmission Date: 20240109
  Serious: Yes (Death)
  Sender: FDA-Public Use
  Company Number: FR-Bion-012165

PATIENT
  Age: 59 Year
  Sex: Female

DRUGS (5)
  1. DEXAMETHASONE [Suspect]
     Active Substance: DEXAMETHASONE
     Indication: Chronic leukaemia
  2. BORTEZOMIB [Concomitant]
     Active Substance: BORTEZOMIB
     Indication: Chronic leukaemia
  3. DARATUMUMAB [Concomitant]
     Active Substance: DARATUMUMAB
     Indication: Chronic leukaemia
  4. CARFILZOMIB [Concomitant]
     Active Substance: CARFILZOMIB
     Indication: Chronic leukaemia
  5. AZACITIDINE [Concomitant]
     Active Substance: AZACITIDINE
     Indication: Chronic leukaemia

REACTIONS (1)
  - Drug ineffective [Fatal]
